FAERS Safety Report 5755579-4 (Version None)
Quarter: 2008Q2

REPORT INFORMATION
  Report Type: 
  Country: None (occurrence: None)
  Receive Date: 20080602
  Receipt Date: 20080527
  Transmission Date: 20081010
  Serious: Yes (Hospitalization, Other)
  Sender: FDA-Public Use
  Company Number: CA-MERCK-0805CAN00090

PATIENT
  Age: 54 Year
  Sex: Male
  Weight: 114 kg

DRUGS (1)
  1. HYZAAR [Suspect]
     Indication: ESSENTIAL HYPERTENSION
     Route: 048
     Dates: start: 20080212

REACTIONS (1)
  - ACUTE MYOCARDIAL INFARCTION [None]
